FAERS Safety Report 10831226 (Version 1)
Quarter: 2015Q1

REPORT INFORMATION
  Report Type: Report from Study
  Country: US (occurrence: US)
  Receive Date: 20150219
  Receipt Date: 20150219
  Transmission Date: 20150721
  Serious: No
  Sender: FDA-Public Use
  Company Number: US-ABBVIE-14P-163-1192908-00

PATIENT
  Age: 56 Year
  Sex: Male

DRUGS (8)
  1. POTASSIUM [Concomitant]
     Active Substance: POTASSIUM
     Indication: ELECTROLYTE SUBSTITUTION THERAPY
     Dosage: 2 TABLET IN MORNING AND 2 IN AFTERNOON
  2. HUMIRA [Suspect]
     Active Substance: ADALIMUMAB
     Dates: start: 20131118, end: 20131118
  3. HUMIRA [Suspect]
     Active Substance: ADALIMUMAB
     Dates: start: 20131205
  4. VITAMIN D2 [Concomitant]
     Active Substance: ERGOCALCIFEROL
     Indication: VITAMIN D DEFICIENCY
  5. LOTREL [Concomitant]
     Active Substance: AMLODIPINE BESYLATE\BENAZEPRIL HYDROCHLORIDE
     Indication: HYPERTENSION
     Dosage: 10/40 MG
  6. HUMIRA [Suspect]
     Active Substance: ADALIMUMAB
     Indication: COLITIS ULCERATIVE
     Dates: start: 20131104, end: 20131104
  7. POTASSIUM [Concomitant]
     Active Substance: POTASSIUM
     Dosage: IN THE AFTERNOON
  8. TENORMIN [Concomitant]
     Active Substance: ATENOLOL
     Indication: HYPERTENSION

REACTIONS (5)
  - Melanocytic naevus [Recovering/Resolving]
  - Frequent bowel movements [Recovered/Resolved]
  - Suture rupture [Unknown]
  - Colitis ulcerative [Recovered/Resolved]
  - Injection site bruising [Recovering/Resolving]

NARRATIVE: CASE EVENT DATE: 20131110
